FAERS Safety Report 9632412 (Version 1)
Quarter: 2013Q4

REPORT INFORMATION
  Report Type: Spontaneous
  Country: US (occurrence: US)
  Receive Date: 20131018
  Receipt Date: 20131018
  Transmission Date: 20140711
  Serious: No
  Sender: FDA-Public Use
  Company Number: US-PFIZER INC-2013297404

PATIENT
  Age: 70 Year
  Sex: Female
  Weight: 64.4 kg

DRUGS (3)
  1. XELJANZ [Suspect]
     Indication: RHEUMATOID ARTHRITIS
     Dosage: 5 MG, 2X/DAY
     Dates: start: 2013, end: 20131011
  2. XELJANZ [Suspect]
     Dosage: 5 MG, 2X/DAY
     Dates: start: 20131014
  3. SYNTHROID [Concomitant]
     Indication: THYROID DISORDER
     Dosage: 100 UG, 1X/DAY

REACTIONS (1)
  - Migraine [Not Recovered/Not Resolved]
